FAERS Safety Report 7771973-4 (Version None)
Quarter: 2011Q3

REPORT INFORMATION
  Report Type: 
  Country: None (occurrence: None)
  Receive Date: 20110922
  Receipt Date: 20101013
  Transmission Date: 20111222
  Serious: No
  Sender: FDA-Public Use
  Company Number: US-ASTRAZENECA-2010SE48327

PATIENT
  Age: 52 Year
  Sex: Male

DRUGS (4)
  1. SEROQUEL XR [Suspect]
     Route: 048
  2. LAMICTAL [Concomitant]
  3. WELLBUTRIN XL [Concomitant]
  4. ARICEPT [Concomitant]

REACTIONS (1)
  - BRAIN INJURY [None]
